FAERS Safety Report 19613045 (Version 1)
Quarter: 2021Q3

REPORT INFORMATION
  Report Type: Spontaneous
  Country: DE (occurrence: DE)
  Receive Date: 20210727
  Receipt Date: 20210727
  Transmission Date: 20211014
  Serious: Yes (Other)
  Sender: FDA-Public Use
  Company Number: DE-ASTELLAS-2021US027383

PATIENT
  Age: 63 Year
  Sex: Male

DRUGS (2)
  1. LEUGON [Concomitant]
     Indication: PRODUCT USED FOR UNKNOWN INDICATION
     Dosage: 11.25 MG, EVERY 3 MONTHS DEOPT
     Route: 065
     Dates: start: 2019
  2. XTANDI [Suspect]
     Active Substance: ENZALUTAMIDE
     Indication: PRODUCT USED FOR UNKNOWN INDICATION
     Route: 065
     Dates: start: 202003

REACTIONS (3)
  - Malignant neoplasm progression [Unknown]
  - Penis disorder [Unknown]
  - Libido decreased [Unknown]
